FAERS Safety Report 7301659-1 (Version None)
Quarter: 2011Q1

REPORT INFORMATION
  Report Type: 
  Country: None (occurrence: None)
  Receive Date: 20110218
  Receipt Date: 20110207
  Transmission Date: 20110831
  Serious: Yes (Other)
  Sender: FDA-Public Use
  Company Number: US-ELI_LILLY_AND_COMPANY-US201102002227

PATIENT
  Age: 45 Year
  Sex: Female

DRUGS (1)
  1. CYMBALTA [Suspect]
     Indication: DEPRESSION
     Dosage: 90 MG, DAILY (1/D)
     Dates: start: 20100101

REACTIONS (4)
  - DIZZINESS [None]
  - DEHYDRATION [None]
  - DRUG INTERACTION [None]
  - PNEUMONIA [None]
